FAERS Safety Report 9928976 (Version 2)
Quarter: 2014Q1

REPORT INFORMATION
  Report Type: Spontaneous
  Country: US (occurrence: US)
  Receive Date: 20140227
  Receipt Date: 20140305
  Transmission Date: 20141002
  Serious: Yes (Hospitalization)
  Sender: FDA-Public Use
  Company Number: US-BAXTER-2014BAX009539

PATIENT
  Sex: Female

DRUGS (9)
  1. DIANEAL LOW CALCIUM [Suspect]
     Indication: PERITONEAL DIALYSIS
     Route: 033
  2. DIANEAL LOW CALCIUM (ULTRABAG) [Suspect]
     Indication: PERITONEAL DIALYSIS
     Dosage: LAST FILL
     Route: 033
  3. EXTRANEAL [Suspect]
     Indication: PERITONEAL DIALYSIS
     Route: 033
  4. GENTAMYCIN [Suspect]
     Indication: PERITONITIS
     Dates: start: 20140216
  5. GENTAMYCIN [Suspect]
     Indication: PERITONITIS
  6. GENTAMYCIN [Suspect]
     Indication: PERITONITIS
  7. CIPRO [Suspect]
     Indication: PERITONITIS
     Dates: start: 20140216
  8. CIPRO [Suspect]
     Indication: PERITONITIS
  9. CIPRO [Suspect]
     Indication: PERITONITIS

REACTIONS (2)
  - Peritonitis bacterial [Recovered/Resolved]
  - Peritoneal dialysis complication [Unknown]
